FAERS Safety Report 10041719 (Version 3)
Quarter: 2014Q3

REPORT INFORMATION
  Report Type: Spontaneous
  Country: US (occurrence: US)
  Receive Date: 20140327
  Receipt Date: 20140731
  Transmission Date: 20150326
  Serious: Yes (Other)
  Sender: FDA-Public Use
  Company Number: 2014SP001797

PATIENT
  Age: 39 Year
  Sex: Female
  Weight: 64.58 kg

DRUGS (14)
  1. ENBREL [Suspect]
     Active Substance: ETANERCEPT
     Indication: RHEUMATOID ARTHRITIS
     Dates: start: 20110129, end: 20130429
  2. RETINOL [Concomitant]
     Active Substance: RETINOL
     Route: 048
     Dates: start: 20130201
  3. LEVOTHYROXIN [Concomitant]
     Active Substance: LEVOTHYROXINE
     Route: 048
     Dates: start: 19970201
  4. ASCORBIC ACID. [Concomitant]
     Active Substance: ASCORBIC ACID
     Route: 048
     Dates: start: 20130201
  5. METHOTREXATE [Suspect]
     Active Substance: METHOTREXATE
     Indication: PRODUCT USED FOR UNKNOWN INDICATION
  6. VITAMIN D [Concomitant]
     Active Substance: CHOLECALCIFEROL
     Route: 048
     Dates: start: 20130201
  7. MINERALS NOS [Concomitant]
     Active Substance: MINERALS
     Route: 048
     Dates: start: 20130201
  8. NICOTINIC ACID [Concomitant]
     Active Substance: NIACIN
     Route: 048
     Dates: start: 20130201
  9. BIOTIN [Concomitant]
     Active Substance: BIOTIN
     Route: 048
     Dates: start: 20130201
  10. PREDNISONE. [Concomitant]
     Active Substance: PREDNISONE
     Route: 048
     Dates: start: 20130626, end: 20130816
  11. PREDNISONE. [Concomitant]
     Active Substance: PREDNISONE
     Dates: start: 20130626, end: 20130816
  12. TOCOPHEROL [Concomitant]
     Active Substance: TOCOPHEROL
     Route: 048
     Dates: start: 20130201
  13. FOLIC ACID. [Concomitant]
     Active Substance: FOLIC ACID
     Dates: start: 20130301, end: 20140301
  14. VITAMIN B NOS [Concomitant]
     Active Substance: VITAMIN B
     Route: 048
     Dates: start: 20130201

REACTIONS (8)
  - Prenatal screening test abnormal [Unknown]
  - Malaise [Unknown]
  - Premature rupture of membranes [Unknown]
  - Premature delivery [Unknown]
  - Exposure during pregnancy [Unknown]
  - Treatment failure [Unknown]
  - Rheumatoid arthritis [Unknown]
  - Arthralgia [Unknown]

NARRATIVE: CASE EVENT DATE: 201307
